FAERS Safety Report 14120501 (Version 3)
Quarter: 2018Q1

REPORT INFORMATION
  Report Type: Not Available
  Country: US (occurrence: US)
  Receive Date: 20171024
  Receipt Date: 20180103
  Transmission Date: 20180508
  Serious: No
  Sender: FDA-Public Use
  Company Number: US-NEUROCRINE BIOSCIENCES INC.-2017NBI00842

PATIENT
  Age: 62 Year
  Sex: Female

DRUGS (3)
  1. XENAZINE [Concomitant]
     Active Substance: TETRABENAZINE
  2. INGREZZA [Suspect]
     Active Substance: VALBENAZINE
     Indication: TARDIVE DYSKINESIA
     Route: 048
     Dates: start: 20170714, end: 20170723
  3. INGREZZA [Suspect]
     Active Substance: VALBENAZINE
     Route: 048
     Dates: start: 20170724, end: 20171004

REACTIONS (6)
  - Drug effect incomplete [None]
  - Weight decreased [Unknown]
  - Tardive dyskinesia [Unknown]
  - Back pain [Unknown]
  - Neck pain [Unknown]
  - Drug ineffective [None]

NARRATIVE: CASE EVENT DATE: 2017
